FAERS Safety Report 12424643 (Version 5)
Quarter: 2016Q3

REPORT INFORMATION
  Report Type: Spontaneous
  Country: US (occurrence: US)
  Receive Date: 20160601
  Receipt Date: 20160805
  Transmission Date: 20161109
  Serious: Yes (Hospitalization, Other)
  Sender: FDA-Public Use
  Company Number: US-PFIZER INC-2016270494

PATIENT
  Age: 74 Year
  Sex: Male
  Weight: 63 kg

DRUGS (5)
  1. CALCIUM [Concomitant]
     Active Substance: CALCIUM
     Dosage: UNK
  2. AMLODIPINE [Concomitant]
     Active Substance: AMLODIPINE BESYLATE
     Dosage: UNK
  3. SUTENT [Suspect]
     Active Substance: SUNITINIB MALATE
     Indication: METASTATIC RENAL CELL CARCINOMA
     Dosage: 37.5 MG, CYCLIC (2 WEEKS ON/1 WEEK OFF)
     Dates: start: 20160506
  4. COZAAR [Concomitant]
     Active Substance: LOSARTAN POTASSIUM
     Dosage: UNK
  5. FLOMAX [Concomitant]
     Active Substance: TAMSULOSIN HYDROCHLORIDE
     Dosage: UNK

REACTIONS (9)
  - Loss of consciousness [Unknown]
  - Hypertension [Unknown]
  - Stomatitis [Unknown]
  - Fatigue [Unknown]
  - Head injury [Unknown]
  - Dehydration [Unknown]
  - Dizziness [Not Recovered/Not Resolved]
  - Abdominal pain upper [Unknown]
  - Fall [Unknown]
